FAERS Safety Report 6621034-2 (Version None)
Quarter: 2010Q1

REPORT INFORMATION
  Report Type: 
  Country: None (occurrence: None)
  Receive Date: 20100309
  Receipt Date: 20100303
  Transmission Date: 20100710
  Serious: Yes (Congenital Anomaly)
  Sender: FDA-Public Use
  Company Number: A0684459A

PATIENT
  Sex: Female

DRUGS (5)
  1. PAROXETINE HYDROCHLORIDE [Suspect]
     Indication: ANXIETY
     Dosage: 20MG PER DAY
     Dates: start: 20050201, end: 20060601
  2. FLUCONAZOLE [Concomitant]
     Dates: start: 20050915
  3. VITAMIN TAB [Concomitant]
  4. METRONIDAZOLE [Concomitant]
     Dates: start: 20060112
  5. FEXOFENADINE [Concomitant]
     Dates: start: 20051206

REACTIONS (4)
  - DRUG EXPOSURE DURING PREGNANCY [None]
  - FALLOT'S TETRALOGY [None]
  - POLYDACTYLY [None]
  - VENTRICULAR SEPTAL DEFECT [None]
